FAERS Safety Report 6557030-3 (Version None)
Quarter: 2010Q1

REPORT INFORMATION
  Report Type: 
  Country: None (occurrence: None)
  Receive Date: 20100128
  Receipt Date: 20100119
  Transmission Date: 20100710
  Serious: Yes (Hospitalization)
  Sender: FDA-Public Use
  Company Number: KR-GILEAD-E2B_00000551

PATIENT
  Sex: Male
  Weight: 58.5 kg

DRUGS (8)
  1. HEPSERA [Suspect]
     Indication: HEPATITIS B
     Dosage: 10MG PER DAY
     Route: 048
     Dates: start: 20060511
  2. ZEFFIX [Concomitant]
     Indication: ANTIVIRAL TREATMENT
     Dates: start: 20050531
  3. AMLODIPINE [Concomitant]
     Indication: HYPERTENSION
     Dates: start: 20021120
  4. URSODEOXYCHOLIC ACID [Concomitant]
     Indication: DRUG USE FOR UNKNOWN INDICATION
     Dates: start: 20060418
  5. RANITIDINE [Concomitant]
     Indication: GASTRIC ULCER
     Dates: start: 20060418
  6. SUCRALFATE [Concomitant]
     Indication: GASTRIC ULCER
     Dates: start: 20060418
  7. ASCORBIC ACID [Concomitant]
     Indication: VITAMIN C
     Dates: start: 20050531
  8. VITAMIN B COMPLEX CAP [Concomitant]
     Indication: HYPOVITAMINOSIS
     Dates: start: 20050531

REACTIONS (1)
  - METASTASES TO ABDOMINAL CAVITY [None]
